FAERS Safety Report 4709401-5 (Version None)
Quarter: 2005Q3

REPORT INFORMATION
  Report Type: 
  Country: None (occurrence: None)
  Receive Date: 20050705
  Receipt Date: 20050628
  Transmission Date: 20060218
  Serious: Yes (Hospitalization, Other)
  Sender: FDA-Public Use
  Company Number: 2005-06-2260

PATIENT
  Age: 56 Year
  Sex: Male

DRUGS (1)
  1. CLARINEX D 24 HOUR [Suspect]
     Dosage: ORAL
     Route: 048

REACTIONS (3)
  - FALL [None]
  - URINARY BLADDER RUPTURE [None]
  - URINARY RETENTION [None]
